FAERS Safety Report 19615179 (Version 1)
Quarter: 2021Q3

REPORT INFORMATION
  Report Type: Report from Study
  Country: US (occurrence: US)
  Receive Date: 20210727
  Receipt Date: 20210727
  Transmission Date: 20211014
  Serious: Yes (Hospitalization)
  Sender: FDA-Public Use
  Company Number: US-TAKEDA-US201927439

PATIENT
  Age: 2 Year
  Sex: Male
  Weight: 4 kg

DRUGS (6)
  1. SODIUM CHLORIDE 0.9% [Concomitant]
     Active Substance: SODIUM CHLORIDE
     Indication: PRODUCT USED FOR UNKNOWN INDICATION
     Route: 065
  2. TEDUGLUTIDE [Suspect]
     Active Substance: TEDUGLUTIDE
     Indication: SHORT-BOWEL SYNDROME
     Dosage: STUDY DRUG NOT ADMINISTERED
     Route: 065
  3. DEXTROSE 5% AND 0.9% NORMAL SALINE [Concomitant]
     Active Substance: DEXTROSE\SODIUM CHLORIDE
     Indication: PRODUCT USED FOR UNKNOWN INDICATION
     Route: 065
  4. TEDUGLUTIDE [Suspect]
     Active Substance: TEDUGLUTIDE
     Indication: SHORT-BOWEL SYNDROME
     Dosage: STUDY DRUG NOT ADMINISTERED
     Route: 065
  5. TEDUGLUTIDE [Suspect]
     Active Substance: TEDUGLUTIDE
     Indication: SHORT-BOWEL SYNDROME
     Dosage: STUDY DRUG NOT ADMINISTERED
     Route: 065
  6. TEDUGLUTIDE [Suspect]
     Active Substance: TEDUGLUTIDE
     Indication: SHORT-BOWEL SYNDROME
     Dosage: STUDY DRUG NOT ADMINISTERED
     Route: 065

REACTIONS (1)
  - False positive investigation result [Recovered/Resolved]

NARRATIVE: CASE EVENT DATE: 20180522
